FAERS Safety Report 6588138-4 (Version None)
Quarter: 2010Q1

REPORT INFORMATION
  Report Type: 
  Country: None (occurrence: None)
  Receive Date: 20100218
  Receipt Date: 20100209
  Transmission Date: 20100710
  Serious: Yes (Other)
  Sender: FDA-Public Use
  Company Number: BE-ASTRAZENECA-2010SE05135

PATIENT
  Age: 57 Year
  Sex: Female
  Weight: 65 kg

DRUGS (3)
  1. CRESTOR [Suspect]
     Indication: HYPERCHOLESTEROLAEMIA
     Route: 048
     Dates: start: 20070101, end: 20090202
  2. ASPIRIN [Concomitant]
     Route: 048
     Dates: start: 20060101
  3. GLUCADOL [Concomitant]
     Indication: ARTHRALGIA
     Dates: start: 20060101

REACTIONS (2)
  - PAIN [None]
  - PANCREATITIS ACUTE [None]
